FAERS Safety Report 15542362 (Version 5)
Quarter: 2019Q1

REPORT INFORMATION
  Report Type: Report from Study
  Country: CA (occurrence: CA)
  Receive Date: 20181023
  Receipt Date: 20190319
  Transmission Date: 20190417
  Serious: Yes (Hospitalization)
  Sender: FDA-Public Use
  Company Number: CA-TAKEDA-2018TUS030020

PATIENT
  Age: 25 Year
  Sex: Female

DRUGS (5)
  1. LOXAPINE. [Concomitant]
     Active Substance: LOXAPINE
     Indication: ANXIETY
     Dosage: 40 MG, QD
  2. VEDOLIZUMAB [Suspect]
     Active Substance: VEDOLIZUMAB
     Dosage: 300 MILLIGRAM, Q4WEEKS
     Route: 042
     Dates: start: 20190311
  3. PREDNISONE. [Concomitant]
     Active Substance: PREDNISONE
     Dosage: UNK
  4. VEDOLIZUMAB [Suspect]
     Active Substance: VEDOLIZUMAB
     Indication: COLITIS ULCERATIVE
     Dosage: 300 MILLIGRAM, UNK
     Route: 042
     Dates: start: 20181001
  5. ABILIFY [Concomitant]
     Active Substance: ARIPIPRAZOLE
     Indication: BIPOLAR II DISORDER
     Dosage: 10 MG, QD

REACTIONS (8)
  - Nausea [Unknown]
  - Oesophagitis [Unknown]
  - Gastrointestinal infection [Unknown]
  - Faecal calprotectin increased [Not Recovered/Not Resolved]
  - Colitis ulcerative [Unknown]
  - Gastritis [Unknown]
  - Vomiting [Unknown]
  - Off label use [Unknown]

NARRATIVE: CASE EVENT DATE: 2018
